FAERS Safety Report 6973790-1 (Version None)
Quarter: 2010Q3

REPORT INFORMATION
  Report Type: 
  Country: None (occurrence: None)
  Receive Date: 20100909
  Receipt Date: 20100908
  Transmission Date: 20110219
  Serious: Yes (Other)
  Sender: FDA-Public Use
  Company Number: A0879031A

PATIENT
  Age: 43 Year
  Sex: Female
  Weight: 124.5 kg

DRUGS (20)
  1. FLUTICASONE PROPIONATE [Suspect]
     Indication: NASAL SEPTUM DEVIATION
     Route: 045
     Dates: start: 20100101
  2. LYRICA [Suspect]
     Indication: FIBROMYALGIA
     Dosage: 130MG THREE TIMES PER DAY
     Route: 048
  3. LISINOPRIL [Suspect]
     Indication: BLOOD PRESSURE
     Dosage: 10MG PER DAY
     Route: 048
  4. SIMVASTATIN [Suspect]
     Dosage: 40MG PER DAY
     Route: 048
  5. MELOXICAM [Suspect]
     Indication: PAIN
     Dosage: 15MG TWICE PER DAY
     Route: 048
  6. CETIRIZINE HCL [Suspect]
     Dosage: 10MG PER DAY
     Route: 048
  7. ACETYLSALICYLIC ACID [Suspect]
     Dosage: 81MG PER DAY
     Route: 048
  8. LEVOTHYROXINE SODIUM [Suspect]
     Indication: THYROID DISORDER
     Route: 048
  9. TEGRETOL [Suspect]
     Indication: MOOD SWINGS
     Dosage: 400MG UNKNOWN
     Route: 048
  10. PROVIGIL [Suspect]
     Dosage: 200MG PER DAY
     Route: 048
  11. PROPRANOLOL [Suspect]
     Indication: BLOOD PRESSURE
     Dosage: 20MG TWICE PER DAY
     Route: 048
  12. METHOCARBAMOL [Suspect]
     Dosage: 500MG TWICE PER DAY
     Route: 048
  13. BACLOFEN [Suspect]
     Dosage: 20MG THREE TIMES PER DAY
     Route: 048
  14. METHADOSE [Suspect]
     Indication: PAIN
     Dosage: 10MG FIVE TIMES PER DAY
     Route: 048
  15. CYMBALTA [Suspect]
     Dosage: 60MG TWICE PER DAY
     Route: 048
  16. INSULIN [Suspect]
  17. MIRALAX [Suspect]
     Indication: CONSTIPATION
     Dosage: 17G PER DAY
     Route: 048
  18. FISH OIL [Suspect]
     Indication: PRODUCT USED FOR UNKNOWN INDICATION
  19. VITAMIN E [Suspect]
     Indication: PRODUCT USED FOR UNKNOWN INDICATION
  20. NONE [Concomitant]

REACTIONS (2)
  - CONVULSION [None]
  - FIBROMYALGIA [None]
